FAERS Safety Report 10497771 (Version 1)
Quarter: 2014Q4

REPORT INFORMATION
  Report Type: Spontaneous
  Country: US (occurrence: US)
  Receive Date: 20141006
  Receipt Date: 20141006
  Transmission Date: 20150528
  Serious: Yes (Other)
  Sender: FDA-Public Use
  Company Number: US-PFIZER INC-2014271832

PATIENT
  Sex: Male

DRUGS (1)
  1. DEPO-TESTOSTERONE [Suspect]
     Active Substance: TESTOSTERONE CYPIONATE
     Dosage: UNK
     Dates: end: 201408

REACTIONS (4)
  - Weight increased [Unknown]
  - Suicidal ideation [Unknown]
  - Irritability [Unknown]
  - Depressed mood [Unknown]
